FAERS Safety Report 16990784 (Version 1)
Quarter: 2019Q4

REPORT INFORMATION
  Report Type: Spontaneous
  Country: US (occurrence: US)
  Receive Date: 20191104
  Receipt Date: 20191104
  Transmission Date: 20200122
  Serious: No
  Sender: FDA-Public Use
  Company Number: US-SA-2019SA296929

PATIENT
  Age: 66 Year
  Sex: Male

DRUGS (13)
  1. CLONAZEPAM. [Concomitant]
     Active Substance: CLONAZEPAM
  2. AUBAGIO [Suspect]
     Active Substance: TERIFLUNOMIDE
     Indication: MULTIPLE SCLEROSIS
     Dosage: 14 MG, QD
     Route: 048
     Dates: start: 20190918, end: 20190922
  3. ATORVASTATIN [Concomitant]
     Active Substance: ATORVASTATIN
  4. PROAIR HFA [Concomitant]
     Active Substance: ALBUTEROL SULFATE
  5. ASPIRIN [ACETYLSALICYLIC ACID] [Concomitant]
     Active Substance: ASPIRIN
  6. CYMBALTA [Concomitant]
     Active Substance: DULOXETINE HYDROCHLORIDE
  7. ANORO ELLIPTA [Concomitant]
     Active Substance: UMECLIDINIUM BROMIDE\VILANTEROL TRIFENATATE
  8. DOXEPIN [Concomitant]
     Active Substance: DOXEPIN
  9. CELEBREX [Concomitant]
     Active Substance: CELECOXIB
  10. METOPROLOL. [Concomitant]
     Active Substance: METOPROLOL
  11. OXYMORPHONE [Concomitant]
     Active Substance: OXYMORPHONE
  12. PRIMIDONE. [Concomitant]
     Active Substance: PRIMIDONE
  13. METHOCARBAMOL. [Concomitant]
     Active Substance: METHOCARBAMOL

REACTIONS (4)
  - Unevaluable event [Unknown]
  - Anxiety [Unknown]
  - Withdrawal syndrome [Unknown]
  - Insomnia [Unknown]
